FAERS Safety Report 14343073 (Version 3)
Quarter: 2018Q4

REPORT INFORMATION
  Report Type: Report from Study
  Country: RU (occurrence: RU)
  Receive Date: 20180102
  Receipt Date: 20181031
  Transmission Date: 20190204
  Serious: Yes (Hospitalization)
  Sender: FDA-Public Use
  Company Number: PHHO2017RU017172

PATIENT
  Age: 68 Year
  Sex: Female
  Weight: 74.9 kg

DRUGS (17)
  1. TORASEMIDE [Concomitant]
     Active Substance: TORSEMIDE
     Indication: HYPERTENSION
     Dosage: 5 MG, UNK
     Route: 065
     Dates: start: 20180623
  2. DROTAVERIN [Suspect]
     Active Substance: DROTAVERINE
     Indication: PANCREATITIS CHRONIC
     Dosage: 1
     Route: 065
     Dates: start: 20171004
  3. BISOPROLOL [Concomitant]
     Active Substance: BISOPROLOL
     Indication: CARDIAC FAILURE CHRONIC
  4. OMEPRAZOLE. [Suspect]
     Active Substance: OMEPRAZOLE
     Indication: PANCREATITIS CHRONIC
     Dosage: 1
     Route: 065
     Dates: start: 20171004
  5. VALSACOR [Concomitant]
     Active Substance: VALSARTAN
     Indication: CARDIAC FAILURE CHRONIC
  6. INDAPAMID [Concomitant]
     Active Substance: INDAPAMIDE
     Indication: HYPERTENSION
     Dosage: 2.5 MG
     Route: 065
     Dates: start: 20160517
  7. PLACEBO [Suspect]
     Active Substance: UNSPECIFIED INGREDIENT
     Indication: CARDIOVASCULAR EVENT PROPHYLAXIS
     Dosage: UNK
     Route: 058
     Dates: start: 20170306
  8. THROMBO ASS [Concomitant]
     Active Substance: ASPIRIN
     Indication: CORONARY ARTERY DISEASE
     Dosage: 100 MG
     Route: 065
     Dates: start: 20160317
  9. MONOCINQUE [Concomitant]
     Active Substance: ISOSORBIDE MONONITRATE
     Indication: ANGINA PECTORIS
     Dosage: 40 MG
     Route: 065
     Dates: start: 20160317
  10. ACZ885 [Suspect]
     Active Substance: CANAKINUMAB
     Indication: CARDIOVASCULAR EVENT PROPHYLAXIS
     Dosage: 1 ML, UNK
     Route: 058
  11. AMLODIPIN [Concomitant]
     Active Substance: AMLODIPINE BESYLATE
     Indication: HYPERTENSION
     Dosage: 5 MG, UNK
     Route: 065
     Dates: start: 20180623
  12. HUMULIN R [Concomitant]
     Active Substance: INSULIN HUMAN
     Indication: DIABETES MELLITUS
     Dosage: 18 IE
     Route: 065
     Dates: start: 20160317
  13. ENZYSTAL P [Suspect]
     Active Substance: PANCRELIPASE
     Indication: PANCREATITIS CHRONIC
     Dosage: 1
     Route: 065
     Dates: start: 20171004
  14. BISOPROLOL [Concomitant]
     Active Substance: BISOPROLOL
     Indication: ANGINA PECTORIS
     Dosage: 2.5 MG
     Route: 065
     Dates: start: 20160317
  15. HUMULIN N [Concomitant]
     Active Substance: INSULIN HUMAN
     Indication: DIABETES MELLITUS
     Dosage: 26 IE
     Route: 065
     Dates: start: 20160317
  16. VALSACOR [Concomitant]
     Active Substance: VALSARTAN
     Indication: HYPERTENSION
     Dosage: 80 MG
     Route: 065
     Dates: start: 20160317
  17. TORVACARD [Concomitant]
     Active Substance: ATORVASTATIN CALCIUM
     Indication: CORONARY ARTERY DISEASE
     Dosage: 20 MG
     Route: 065
     Dates: start: 20160317

REACTIONS (2)
  - Pancreatitis chronic [Recovered/Resolved]
  - Pancreatitis chronic [Recovered/Resolved]

NARRATIVE: CASE EVENT DATE: 20171004
